FAERS Safety Report 17764128 (Version 1)
Quarter: 2020Q2

REPORT INFORMATION
  Report Type: Spontaneous
  Country: US (occurrence: US)
  Receive Date: 20200511
  Receipt Date: 20200511
  Transmission Date: 20200714
  Serious: No
  Sender: FDA-Public Use
  Company Number: US-BIOGEN-2019BI00772878

PATIENT
  Sex: Female

DRUGS (1)
  1. TYSABRI [Suspect]
     Active Substance: NATALIZUMAB
     Indication: MULTIPLE SCLEROSIS
     Route: 065
     Dates: start: 20170828

REACTIONS (11)
  - Gastrooesophageal reflux disease [Unknown]
  - Agitation [Unknown]
  - Fatigue [Unknown]
  - Respiratory disorder [Unknown]
  - Muscle tightness [Unknown]
  - Abdominal pain upper [Unknown]
  - Nasal disorder [Unknown]
  - Headache [Unknown]
  - Muscle spasms [Unknown]
  - Depression [Unknown]
  - Pharyngeal disorder [Unknown]
